FAERS Safety Report 19009806 (Version 1)
Quarter: 2021Q1

REPORT INFORMATION
  Report Type: Spontaneous
  Country: US (occurrence: US)
  Receive Date: 20210315
  Receipt Date: 20210315
  Transmission Date: 20210420
  Serious: Yes (Hospitalization)
  Sender: FDA-Public Use
  Company Number: US-GW PHARMA-202103USGW01080

PATIENT

DRUGS (1)
  1. EPIDIOLEX [Suspect]
     Active Substance: CANNABIDIOL
     Indication: EPILEPSY
     Dosage: 32.65 MG/KG/DAY, 400 MILLIGRAM, BID
     Route: 048
     Dates: start: 20190731

REACTIONS (3)
  - Seizure [Unknown]
  - Prescribed overdose [Unknown]
  - Change in seizure presentation [Unknown]
